FAERS Safety Report 18556726 (Version 1)
Quarter: 2020Q4

REPORT INFORMATION
  Report Type: Spontaneous
  Country: US (occurrence: US)
  Receive Date: 20201128
  Receipt Date: 20201128
  Transmission Date: 20210114
  Serious: Yes (Other)
  Sender: FDA-Public Use
  Company Number: US-009507513-2011USA015100

PATIENT
  Age: 70 Year
  Sex: Female
  Weight: 49.94 kg

DRUGS (3)
  1. PRINIVIL [Suspect]
     Active Substance: LISINOPRIL
     Dosage: 40 MG, UNK
     Route: 048
     Dates: start: 201303, end: 201304
  2. PRINIVIL [Suspect]
     Active Substance: LISINOPRIL
     Indication: HYPERTENSION
     Dosage: 20 MG, UNK
     Route: 048
     Dates: end: 201303
  3. ATENOLOL. [Suspect]
     Active Substance: ATENOLOL
     Indication: PRODUCT USED FOR UNKNOWN INDICATION
     Dosage: UNK
     Route: 065

REACTIONS (8)
  - Blood pressure increased [Unknown]
  - Face oedema [Unknown]
  - Lip swelling [Unknown]
  - Paraesthesia oral [Unknown]
  - Paraesthesia [Not Recovered/Not Resolved]
  - Erythema [Not Recovered/Not Resolved]
  - Urticaria [Unknown]
  - Drug ineffective [Unknown]

NARRATIVE: CASE EVENT DATE: 201303
